FAERS Safety Report 10186909 (Version 2)
Quarter: 2014Q2

REPORT INFORMATION
  Report Type: Spontaneous
  Country: VE (occurrence: VE)
  Receive Date: 20140522
  Receipt Date: 20140530
  Transmission Date: 20141212
  Serious: Yes (Death, Hospitalization, Other)
  Sender: FDA-Public Use
  Company Number: VE-JNJFOC-20140513152

PATIENT
  Age: 40 Year
  Sex: Male

DRUGS (2)
  1. REMICADE [Suspect]
     Indication: CROHN^S DISEASE
     Dosage: 200 MG
     Route: 042
     Dates: start: 201310, end: 201402
  2. AZATHIOPRINE [Concomitant]
     Route: 065
     Dates: end: 201402

REACTIONS (4)
  - Pulmonary embolism [Fatal]
  - Cerebral artery embolism [Fatal]
  - Infection [Recovered/Resolved]
  - Deep vein thrombosis [Not Recovered/Not Resolved]
